FAERS Safety Report 9702799 (Version 2)
Quarter: 2013Q4

REPORT INFORMATION
  Report Type: Spontaneous
  Country: US (occurrence: US)
  Receive Date: 20131121
  Receipt Date: 20131209
  Transmission Date: 20140711
  Serious: Yes (Hospitalization, Other)
  Sender: FDA-Public Use
  Company Number: US-GILEAD-2013-0088394

PATIENT
  Age: 47 Year
  Sex: Female

DRUGS (2)
  1. LETAIRIS [Suspect]
     Indication: PULMONARY HYPERTENSION
     Dosage: 10 MG, UNK
     Route: 048
     Dates: start: 20130430
  2. LETAIRIS [Suspect]
     Indication: CREST SYNDROME

REACTIONS (4)
  - Peripheral arterial occlusive disease [Unknown]
  - Ascites [Unknown]
  - Chest pain [Unknown]
  - Dyspnoea [Unknown]
